FAERS Safety Report 5662039-8 (Version None)
Quarter: 2008Q1

REPORT INFORMATION
  Report Type: 
  Country: None (occurrence: None)
  Receive Date: 20080312
  Receipt Date: 20080303
  Transmission Date: 20080703
  Serious: Yes (Hospitalization, Other)
  Sender: FDA-Public Use
  Company Number: GR-ASTRAZENECA-2008SE01216

PATIENT
  Sex: Male

DRUGS (4)
  1. NOLVADEX [Suspect]
     Indication: HYPOGONADISM
     Route: 048
     Dates: start: 20070701
  2. PREGNYL [Interacting]
     Indication: HYPOGONADISM
     Dates: start: 20070701
  3. ZITHROMAX [Concomitant]
     Route: 048
  4. TAVANIC [Concomitant]

REACTIONS (2)
  - DRUG INTERACTION [None]
  - PULMONARY EMBOLISM [None]
